FAERS Safety Report 5162749-5 (Version None)
Quarter: 2006Q4

REPORT INFORMATION
  Report Type: 
  Country: None (occurrence: None)
  Receive Date: 20061201
  Receipt Date: 20061127
  Transmission Date: 20070319
  Serious: Yes (Other)
  Sender: FDA-Public Use
  Company Number: US-AVENTIS-200619644US

PATIENT
  Age: 32 Year
  Sex: Male

DRUGS (14)
  1. LANTUS [Suspect]
     Indication: DIABETES MELLITUS INSULIN-DEPENDENT
     Dates: start: 20060101
  2. LANTUS [Suspect]
     Dates: start: 20060101
  3. ANTI-REJECTION DRUGS [Concomitant]
     Indication: RENAL TRANSPLANT
     Dosage: DOSE: UNK
  4. PREDNISONE TAB [Concomitant]
     Dosage: DOSE: UNK
  5. BACTRIM [Concomitant]
     Dosage: DOSE: UNK
  6. SELSAPEC [Concomitant]
     Dosage: DOSE: UNK
  7. NEORAL [Concomitant]
     Dosage: DOSE: UNK
  8. RANITIDINE [Concomitant]
     Dosage: DOSE: UNK
  9. LISINOPRIL [Concomitant]
     Dosage: DOSE: UNK
  10. COREG [Concomitant]
     Dosage: DOSE: UNK
  11. LIPITOR [Concomitant]
     Dosage: DOSE: UNK
  12. HUMALOG [Concomitant]
     Dosage: DOSE: UNK
  13. DAILY-VITE [Concomitant]
     Dosage: DOSE: UNK
  14. OTHER UNKNOWN CONCOMITANT MEDICATIONS [Concomitant]
     Dosage: DOSE: UNK

REACTIONS (7)
  - BLINDNESS [None]
  - BLOOD GLUCOSE INCREASED [None]
  - CONDITION AGGRAVATED [None]
  - DRUG INEFFECTIVE [None]
  - HALO VISION [None]
  - VISUAL ACUITY REDUCED [None]
  - VISUAL FIELD DEFECT [None]
